FAERS Safety Report 9847847 (Version 1)
Quarter: 2014Q1

REPORT INFORMATION
  Report Type: Spontaneous
  Country: US (occurrence: US)
  Receive Date: 20140128
  Receipt Date: 20140128
  Transmission Date: 20141002
  Serious: No
  Sender: FDA-Public Use
  Company Number: US-009507513-1401USA011030

PATIENT
  Age: 10 Year
  Sex: Female

DRUGS (2)
  1. NASONEX [Suspect]
     Dosage: 2 SPRAYS IN EACH NOSTRIL ONCE DAILY
     Route: 045
  2. NASONEX [Suspect]
     Dosage: 1 SPRAY IN EACH NOSTRIL DAILY
     Route: 045

REACTIONS (3)
  - Drug prescribing error [Unknown]
  - Prescribed overdose [Unknown]
  - No adverse event [Unknown]
